FAERS Safety Report 5695554-1 (Version None)
Quarter: 2008Q2

REPORT INFORMATION
  Report Type: 
  Country: None (occurrence: None)
  Receive Date: 20080407
  Receipt Date: 20080328
  Transmission Date: 20081010
  Serious: Yes (Hospitalization)
  Sender: FDA-Public Use
  Company Number: FR-BRISTOL-MYERS SQUIBB COMPANY-14139646

PATIENT
  Age: 76 Year
  Sex: Female

DRUGS (5)
  1. ENDOXAN [Suspect]
     Indication: B-CELL LYMPHOMA
     Route: 042
     Dates: start: 20071211, end: 20071211
  2. DOXORUBICIN HCL [Suspect]
     Indication: B-CELL LYMPHOMA
     Route: 042
     Dates: start: 20071211, end: 20071211
  3. VINCRISTINE [Suspect]
     Indication: B-CELL LYMPHOMA
     Dosage: OVER 5 MINUTES
     Route: 042
     Dates: start: 20071211, end: 20071211
  4. PREDNISOLONE [Suspect]
     Indication: B-CELL LYMPHOMA
     Route: 048
     Dates: start: 20071211, end: 20071215
  5. MABTHERA [Concomitant]
     Dates: start: 20071211, end: 20071211

REACTIONS (7)
  - CONFUSIONAL STATE [None]
  - CONVULSION [None]
  - LOSS OF CONSCIOUSNESS [None]
  - MALAISE [None]
  - NEUTROPENIA [None]
  - PYREXIA [None]
  - URINARY INCONTINENCE [None]
